FAERS Safety Report 11754129 (Version 1)
Quarter: 2015Q4

REPORT INFORMATION
  Report Type: Spontaneous
  Country: FI (occurrence: FI)
  Receive Date: 20151119
  Receipt Date: 20151119
  Transmission Date: 20160304
  Serious: Yes (Hospitalization)
  Sender: FDA-Public Use
  Company Number: FI-AUROBINDO-AUR-APL-2015-10175

PATIENT

DRUGS (1)
  1. RAMIPRIL 10MG [Suspect]
     Active Substance: RAMIPRIL
     Indication: HYPERTENSION

REACTIONS (3)
  - Cardiovascular insufficiency [Recovered/Resolved]
  - Infection [Recovered/Resolved]
  - Condition aggravated [Recovered/Resolved]
